FAERS Safety Report 10151389 (Version 2)
Quarter: 2014Q2

REPORT INFORMATION
  Report Type: Spontaneous
  Country: JP (occurrence: JP)
  Receive Date: 20140502
  Receipt Date: 20140603
  Transmission Date: 20141212
  Serious: Yes (Other)
  Sender: FDA-Public Use
  Company Number: PHHY2014JP052398

PATIENT
  Age: 85 Year
  Sex: Female

DRUGS (2)
  1. ZOMETA [Suspect]
     Indication: METASTASES TO BONE
     Dosage: UNK UKN, UNK
     Route: 042
  2. BONALON [Suspect]
     Dosage: UNK UKN, UNK

REACTIONS (2)
  - Incision site ulcer [Unknown]
  - Osteomyelitis [Unknown]
